FAERS Safety Report 12269308 (Version 1)
Quarter: 2016Q2

REPORT INFORMATION
  Report Type: Spontaneous
  Country: US (occurrence: US)
  Receive Date: 20160414
  Receipt Date: 20160414
  Transmission Date: 20160815
  Serious: Yes (Other)
  Sender: FDA-Public Use
  Company Number: US-TEVA-651097USA

PATIENT
  Age: 4 Decade
  Sex: Male

DRUGS (1)
  1. ZECUITY [Suspect]
     Active Substance: SUMATRIPTAN SUCCINATE
     Dates: start: 201603

REACTIONS (2)
  - Application site burn [Recovering/Resolving]
  - Application site bruise [Recovering/Resolving]
